FAERS Safety Report 10892719 (Version 1)
Quarter: 2015Q1

REPORT INFORMATION
  Report Type: Spontaneous
  Country: IT (occurrence: IT)
  Receive Date: 20150306
  Receipt Date: 20150306
  Transmission Date: 20150721
  Serious: Yes (Hospitalization)
  Sender: FDA-Public Use
  Company Number: IT-WATSON-2015-04371

PATIENT
  Age: 52 Year
  Sex: Female

DRUGS (3)
  1. MICARDIS [Concomitant]
     Active Substance: TELMISARTAN
     Indication: HYPERTENSION
     Dosage: UNK UNK, UNKNOWN
     Route: 065
  2. ZOLPIDEM [Suspect]
     Active Substance: ZOLPIDEM\ZOLPIDEM TARTRATE
     Indication: INSOMNIA
     Dosage: 6 DF, TOTAL
     Route: 048
     Dates: start: 20150107, end: 20150107
  3. BISOPROLOL [Concomitant]
     Active Substance: BISOPROLOL
     Indication: HYPERTENSION
     Dosage: UNK UNK, UNKNOWN
     Route: 065

REACTIONS (3)
  - Aphasia [Recovering/Resolving]
  - Sopor [Recovering/Resolving]
  - Overdose [Recovering/Resolving]

NARRATIVE: CASE EVENT DATE: 20150107
